FAERS Safety Report 4289611-4 (Version None)
Quarter: 2004Q1

REPORT INFORMATION
  Report Type: 
  Country: None (occurrence: None)
  Receive Date: 20040126
  Receipt Date: 20030324
  Transmission Date: 20041129
  Serious: Yes (Life-Threatening, Hospitalization)
  Sender: FDA-Public Use
  Company Number: 334636

PATIENT
  Age: 42 Year
  Sex: Female

DRUGS (4)
  1. TORADOL [Suspect]
     Indication: POST PROCEDURAL PAIN
     Dosage: 15 MG 1 PER ONE DOSE
  2. NA [Suspect]
     Dosage: NA
  3. FENTANYL CITRATE [Concomitant]
  4. ROPIVACAINE (ROPIVACAINE) [Concomitant]

REACTIONS (3)
  - DYSPNOEA [None]
  - RESPIRATORY DISTRESS [None]
  - WHEEZING [None]
